FAERS Safety Report 15010425 (Version 4)
Quarter: 2018Q3

REPORT INFORMATION
  Report Type: Report from Study
  Country: US (occurrence: US)
  Receive Date: 20180614
  Receipt Date: 20180807
  Transmission Date: 20181010
  Serious: Yes (Other)
  Sender: FDA-Public Use
  Company Number: US-AMGEN-USASP2018078242

PATIENT
  Age: 61 Year
  Sex: Female

DRUGS (2)
  1. ENBREL [Suspect]
     Active Substance: ETANERCEPT
     Indication: RHEUMATOID ARTHRITIS
     Dosage: 50 MG, QWK
     Route: 065
     Dates: start: 2017
  2. ENBREL [Suspect]
     Active Substance: ETANERCEPT
     Dosage: 50 MG, QWK
     Route: 065
     Dates: start: 201806

REACTIONS (11)
  - Injection site swelling [Unknown]
  - Injection site pruritus [Unknown]
  - Wrong technique in product usage process [Unknown]
  - Hip arthroplasty [Unknown]
  - Pain [Unknown]
  - Injection site bruising [Unknown]
  - Drug dose omission [Unknown]
  - Incorrect dose administered by device [Unknown]
  - Walking aid user [Not Recovered/Not Resolved]
  - Injection site pain [Unknown]
  - Pain in extremity [Not Recovered/Not Resolved]

NARRATIVE: CASE EVENT DATE: 20171023
